FAERS Safety Report 4415211-9 (Version None)
Quarter: 2004Q3

REPORT INFORMATION
  Report Type: 
  Country: None (occurrence: None)
  Receive Date: 20040804
  Receipt Date: 20040218
  Transmission Date: 20050211
  Serious: Yes (Hospitalization, Other)
  Sender: FDA-Public Use
  Company Number: US-GLAXOSMITHKLINE-A0498747A

PATIENT
  Age: 70 Year
  Sex: Female
  Weight: 63.6 kg

DRUGS (7)
  1. COREG [Suspect]
     Route: 048
     Dates: start: 20030901, end: 20040301
  2. FUROSEMIDE [Concomitant]
     Route: 048
     Dates: start: 19980101
  3. ENALAPRIL MALEATE [Concomitant]
     Route: 048
  4. ACCOLATE [Concomitant]
     Indication: ASTHMA
     Dosage: 1TAB TWICE PER DAY
     Route: 048
  5. MEDROL [Concomitant]
     Indication: UPPER RESPIRATORY TRACT INFECTION
     Route: 048
     Dates: start: 20040204
  6. LEVAQUIN [Concomitant]
     Indication: UPPER RESPIRATORY TRACT INFECTION
     Route: 048
     Dates: start: 20040204
  7. DIGOXIN [Concomitant]
     Route: 048
     Dates: start: 19980101, end: 20040213

REACTIONS (10)
  - ATRIAL FIBRILLATION [None]
  - BLOOD PRESSURE DECREASED [None]
  - DYSPNOEA [None]
  - HEART RATE DECREASED [None]
  - HYPERSENSITIVITY [None]
  - HYPOTENSION [None]
  - LETHARGY [None]
  - PLEURAL EFFUSION [None]
  - RESPIRATORY TRACT INFECTION [None]
  - THROAT TIGHTNESS [None]
